FAERS Safety Report 7330098-2 (Version None)
Quarter: 2011Q1

REPORT INFORMATION
  Report Type: 
  Country: None (occurrence: None)
  Receive Date: 20110303
  Receipt Date: 20110221
  Transmission Date: 20110831
  Serious: Yes (Hospitalization, Other)
  Sender: FDA-Public Use
  Company Number: US-ELI_LILLY_AND_COMPANY-US201102006311

PATIENT
  Sex: Female

DRUGS (10)
  1. ARICEPT [Concomitant]
     Dosage: UNK, DAILY (1/D)
  2. CYMBALTA [Concomitant]
     Indication: DEPRESSION
     Dosage: UNK, DAILY (1/D)
  3. OMEPRAZOLE [Concomitant]
     Dosage: 20 MG, 2/D
  4. RELAFIN [Concomitant]
     Dosage: UNK, DAILY (1/D)
  5. VESICARE [Concomitant]
     Dosage: UNK, DAILY (1/D)
  6. LOTREL [Concomitant]
     Dosage: UNK, DAILY (1/D)
  7. GLIPIZIDE [Concomitant]
     Indication: DIABETES MELLITUS
     Dosage: 2.5 MG, DAILY (1/D)
  8. FORTEO [Suspect]
     Indication: OSTEOPOROSIS
     Dosage: 20 UG, DAILY (1/D)
     Route: 065
     Dates: end: 20110201
  9. NAMENDA [Concomitant]
     Dosage: 10 MG, 2/D
  10. OXYCONTIN [Concomitant]
     Dosage: 30 MG, 2/D

REACTIONS (2)
  - BACTERIAL INFECTION [None]
  - OXYGEN SATURATION DECREASED [None]
